FAERS Safety Report 20877522 (Version 1)
Quarter: 2022Q2

REPORT INFORMATION
  Report Type: Spontaneous
  Country: US (occurrence: US)
  Receive Date: 20220526
  Receipt Date: 20220526
  Transmission Date: 20220721
  Serious: No
  Sender: FDA-Public Use
  Company Number: US-PFIZER INC-202200757949

PATIENT
  Age: 80 Year
  Sex: Female
  Weight: 69.4 kg

DRUGS (1)
  1. ERYTHROMYCIN [Suspect]
     Active Substance: ERYTHROMYCIN
     Dosage: UNK

REACTIONS (4)
  - Product prescribing error [Unknown]
  - Drug hypersensitivity [Unknown]
  - Throat tightness [Unknown]
  - Pruritus [Unknown]
